FAERS Safety Report 10264191 (Version 1)
Quarter: 2014Q2

REPORT INFORMATION
  Report Type: Spontaneous
  Country: US (occurrence: None)
  Receive Date: 20140624
  Receipt Date: 20140624
  Transmission Date: 20141212
  Serious: Yes (Other)
  Sender: FDA-Public Use
  Company Number: 001754281A

PATIENT
  Age: 52 Year
  Sex: Female

DRUGS (6)
  1. PROACTIV+ SKIN SMOOTHING EXFOLIATOR [Suspect]
     Indication: ACNE
     Dosage: TWICE DAILY DERMAL
     Dates: start: 20140509, end: 20140523
  2. PROACTIV+ PORE TARGETING TREATMENT [Suspect]
     Indication: ACNE
     Dosage: TWICE DAILY DERMAL
     Dates: start: 20140509, end: 20140523
  3. PROACTIV+ MARK FADING PADS [Suspect]
     Indication: ACNE
     Dosage: TWICE DAILY DERMAL
     Dates: start: 20140509, end: 20140523
  4. PROACTIV PLUS COMPLEXION PERFECTING HYDRATOR [Suspect]
     Indication: ACNE
     Dosage: TWICE DAILY DERMAL
     Dates: start: 20140509, end: 20140523
  5. PROACTIV+ SKIN PURIFYING MASK [Concomitant]
     Indication: ACNE
     Dosage: TWICE DAILY DERMAL
     Dates: start: 20140509, end: 20140523
  6. MULTI VITAMIN [Concomitant]

REACTIONS (3)
  - Erythema [None]
  - Skin burning sensation [None]
  - Rash pruritic [None]
